FAERS Safety Report 8271836-4 (Version None)
Quarter: 2012Q2

REPORT INFORMATION
  Report Type: 
  Country: None (occurrence: None)
  Receive Date: 20120410
  Receipt Date: 20120402
  Transmission Date: 20120825
  Serious: Yes (Hospitalization)
  Sender: FDA-Public Use
  Company Number: US-VERTEX PHARMACEUTICALS INC.-AE-2012-004769

PATIENT
  Sex: Female

DRUGS (3)
  1. INCIVEK [Suspect]
     Indication: HEPATITIS C
     Route: 048
     Dates: start: 20120307
  2. PEGASYS [Concomitant]
     Indication: HEPATITIS C
     Route: 058
     Dates: start: 20120307
  3. RIBAVIRIN [Concomitant]
     Indication: HEPATITIS C
     Dates: start: 20120307

REACTIONS (9)
  - TOOTH FRACTURE [None]
  - GINGIVITIS [None]
  - ORAL PAIN [None]
  - NAUSEA [None]
  - DIZZINESS [None]
  - CRYOGLOBULINAEMIA [None]
  - VOMITING [None]
  - ORAL CANDIDIASIS [None]
  - ASTHENIA [None]
